FAERS Safety Report 9188578 (Version 1)
Quarter: 2013Q1

REPORT INFORMATION
  Report Type: Spontaneous
  Country: TW (occurrence: TW)
  Receive Date: 20130325
  Receipt Date: 20130325
  Transmission Date: 20140127
  Serious: Yes (Hospitalization)
  Sender: FDA-Public Use
  Company Number: TW-ASTELLAS-2013JP004183

PATIENT
  Age: 47 Year
  Sex: Male

DRUGS (1)
  1. PROGRAF [Suspect]
     Indication: LIVER TRANSPLANT
     Dosage: 5 MG, UNKNOWN/D
     Route: 048
     Dates: start: 20120118

REACTIONS (3)
  - Dysarthria [Recovering/Resolving]
  - Dysphagia [Recovering/Resolving]
  - Muscular weakness [Recovering/Resolving]
